FAERS Safety Report 8030529-9 (Version None)
Quarter: 2012Q1

REPORT INFORMATION
  Report Type: 
  Country: None (occurrence: None)
  Receive Date: 20120109
  Receipt Date: 20120103
  Transmission Date: 20120608
  Serious: No
  Sender: FDA-Public Use
  Company Number: US-BAYER-2012-001248

PATIENT
  Age: 61 Year
  Sex: Female
  Weight: 75 kg

DRUGS (3)
  1. PROZAC [Concomitant]
  2. ALEVE (CAPLET) [Suspect]
     Indication: PAIN
     Dosage: 220 MG, BID, BOTTLE COUNT 50S
     Route: 048
     Dates: start: 20111123, end: 20111231
  3. XANAX [Concomitant]

REACTIONS (4)
  - PRURITUS [None]
  - HYPERSENSITIVITY [None]
  - URTICARIA [None]
  - DYSPNOEA [None]
